FAERS Safety Report 4308461-3 (Version None)
Quarter: 2004Q1

REPORT INFORMATION
  Report Type: 
  Country: None (occurrence: None)
  Receive Date: 20040225
  Receipt Date: 20030131
  Transmission Date: 20041129
  Serious: Yes (Disabling)
  Sender: FDA-Public Use
  Company Number: WAES 0302USA00092

PATIENT
  Age: 78 Year
  Sex: Female
  Weight: 97.5234 kg

DRUGS (7)
  1. ZOCOR [Suspect]
     Dosage: 20 MG/ DAILY/ PO
     Route: 048
     Dates: start: 19990701, end: 20001230
  2. FOSAMAX [Concomitant]
  3. NORVASC [Concomitant]
  4. PEPCID [Concomitant]
  5. ZESTORETIC [Concomitant]
  6. ZESTRIL [Concomitant]
  7. PREDNISONE [Concomitant]

REACTIONS (2)
  - MYOPATHY [None]
  - POLYMYALGIA RHEUMATICA [None]
